FAERS Safety Report 5504153-3 (Version None)
Quarter: 2007Q4

REPORT INFORMATION
  Report Type: 
  Country: None (occurrence: None)
  Receive Date: 20071101
  Receipt Date: 20071030
  Transmission Date: 20080405
  Serious: Yes (Other)
  Sender: FDA-Public Use
  Company Number: A0690586A

PATIENT
  Age: 18 Year
  Sex: Female

DRUGS (3)
  1. LAMICTAL [Suspect]
     Indication: BIPOLAR DISORDER
     Dosage: 25MG PER DAY
     Route: 048
     Dates: start: 20071026
  2. TRILEPTAL [Concomitant]
  3. ABILIFY [Concomitant]

REACTIONS (2)
  - RASH [None]
  - RECTAL HAEMORRHAGE [None]
